FAERS Safety Report 6156590-4 (Version None)
Quarter: 2009Q2

REPORT INFORMATION
  Report Type: 
  Country: None (occurrence: None)
  Receive Date: 20090416
  Receipt Date: 20090406
  Transmission Date: 20091009
  Serious: Yes (Life-Threatening, Hospitalization)
  Sender: FDA-Public Use
  Company Number: JP-AMGEN-US342866

PATIENT
  Age: 58 Year
  Sex: Female

DRUGS (4)
  1. ENBREL [Suspect]
     Indication: RHEUMATOID ARTHRITIS
     Route: 058
     Dates: start: 20060913, end: 20090304
  2. ISCOTIN [Concomitant]
     Indication: ANTIBIOTIC PROPHYLAXIS
     Dosage: UNSPECIFIED
     Route: 048
     Dates: start: 20060317, end: 20070620
  3. ISCOTIN [Concomitant]
     Route: 048
     Dates: start: 20090406
  4. METHOTREXATE [Concomitant]
     Dosage: UNSPECIFIED
     Route: 048
     Dates: start: 20050913

REACTIONS (3)
  - HEPATIC ENZYME INCREASED [None]
  - TUBERCULOSIS [None]
  - URETHRITIS [None]
